FAERS Safety Report 10145874 (Version 1)
Quarter: 2014Q2

REPORT INFORMATION
  Report Type: Report from Study
  Country: US (occurrence: US)
  Receive Date: 20140501
  Receipt Date: 20140501
  Transmission Date: 20141212
  Serious: No
  Sender: FDA-Public Use
  Company Number: US-ABBVIE-13P-163-1131284-00

PATIENT
  Sex: Female

DRUGS (3)
  1. CREON [Suspect]
     Indication: CYSTIC FIBROSIS
     Dosage: 2 PILLS X 12,000 USP; 2 TIMES PER DAY WITH FOOD
     Dates: start: 201303
  2. VITAMIN C [Concomitant]
     Indication: PRODUCT USED FOR UNKNOWN INDICATION
  3. METFORMIN [Concomitant]
     Indication: PRODUCT USED FOR UNKNOWN INDICATION

REACTIONS (1)
  - Abdominal discomfort [Unknown]
